FAERS Safety Report 6297765-3 (Version None)
Quarter: 2009Q3

REPORT INFORMATION
  Report Type: 
  Country: None (occurrence: None)
  Receive Date: 20090804
  Receipt Date: 20090804
  Transmission Date: 20100115
  Serious: Yes (Hospitalization)
  Sender: FDA-Public Use
  Company Number: None

PATIENT
  Age: 60 Year
  Sex: Female
  Weight: 95 kg

DRUGS (1)
  1. WARFARIN SODIUM [Suspect]
     Indication: PULMONARY EMBOLISM
     Dosage: 5 MG DAILY ORAL (047)
     Route: 048
     Dates: start: 20090527, end: 20090714

REACTIONS (6)
  - CONFUSIONAL STATE [None]
  - INTERNATIONAL NORMALISED RATIO INCREASED [None]
  - OSTEOARTHRITIS [None]
  - PNEUMONITIS [None]
  - SELF-MEDICATION [None]
  - UPPER GASTROINTESTINAL HAEMORRHAGE [None]
